FAERS Safety Report 17994782 (Version 1)
Quarter: 2020Q3

REPORT INFORMATION
  Report Type: Spontaneous
  Country: FR (occurrence: US)
  Receive Date: 20200707
  Receipt Date: 20200707
  Transmission Date: 20201103
  Serious: Yes (Other)
  Sender: FDA-Public Use
  Company Number: 2020CHF03151

PATIENT
  Age: 22 Year
  Sex: Male
  Weight: 70 kg

DRUGS (1)
  1. FERRIPROX [Suspect]
     Active Substance: DEFERIPRONE
     Indication: GENE MUTATION
     Dosage: C2. DOSE, FREQUENCY + ROUTE USED ?SUSPECT MEDICATION #1: 21 MILLIGRAM/KILOGRAM, QD, ORAL
     Route: 048
     Dates: start: 20191128, end: 20200411

REACTIONS (3)
  - Agranulocytosis [None]
  - Neutropenia [None]
  - Leukopenia [None]

NARRATIVE: CASE EVENT DATE: 20200410
